FAERS Safety Report 5661880-5 (Version None)
Quarter: 2008Q1

REPORT INFORMATION
  Report Type: 
  Country: None (occurrence: None)
  Receive Date: 20080312
  Receipt Date: 20080305
  Transmission Date: 20080703
  Serious: Yes (Other)
  Sender: FDA-Public Use
  Company Number: US-JNJFOC-20080302175

PATIENT
  Sex: Female
  Weight: 79.38 kg

DRUGS (13)
  1. DURAGESIC-100 [Suspect]
     Indication: PAIN
     Route: 062
  2. PLAVIX [Concomitant]
     Route: 048
  3. ATENOLOL [Concomitant]
     Indication: BLOOD PRESSURE
     Route: 048
  4. RAZADYNE [Concomitant]
     Indication: DEMENTIA ALZHEIMER'S TYPE
     Route: 048
  5. CRESTOR [Concomitant]
     Indication: BLOOD CHOLESTEROL
     Route: 048
  6. LYRICA [Concomitant]
     Indication: FIBROMYALGIA
     Route: 048
  7. SINGULAIR [Concomitant]
     Indication: ASTHMA
     Route: 048
  8. KLONOPIN [Concomitant]
     Indication: ANXIETY
     Route: 048
  9. DILAUDID [Concomitant]
     Indication: PAIN
     Dosage: AS NEEDED
     Route: 048
  10. ALBUTEROL [Concomitant]
     Indication: ASTHMA
     Route: 055
  11. PULMICORT [Concomitant]
     Indication: ASTHMA
     Route: 055
  12. SPIRIVA [Concomitant]
     Indication: ASTHMA
     Dosage: 1 PUFF DAILY
     Route: 055
  13. LIDODERM [Concomitant]
     Indication: PAIN
     Route: 062

REACTIONS (2)
  - DEMENTIA ALZHEIMER'S TYPE [None]
  - INCORRECT DOSE ADMINISTERED [None]
